FAERS Safety Report 17719717 (Version 1)
Quarter: 2020Q2

REPORT INFORMATION
  Report Type: Spontaneous
  Country: JP (occurrence: JP)
  Receive Date: 20200428
  Receipt Date: 20200428
  Transmission Date: 20200714
  Serious: Yes (Other)
  Sender: FDA-Public Use
  Company Number: JP-PFIZER INC-2020164901

PATIENT
  Weight: 48.5 kg

DRUGS (2)
  1. METHOTREXATE SODIUM. [Suspect]
     Active Substance: METHOTREXATE SODIUM
     Indication: SARCOMA
     Dosage: 1000 MG/M2, PER DOSE (1400 MG, PER DOSE)
     Route: 041
  2. LEUCOVORIN [CALCIUM FOLINATE] [Concomitant]
     Active Substance: LEUCOVORIN
     Indication: SARCOMA
     Dosage: 15 MG, EVERY 3 HRS

REACTIONS (1)
  - Drug level increased [Unknown]
